FAERS Safety Report 6017127-3 (Version None)
Quarter: 2008Q4

REPORT INFORMATION
  Report Type: 
  Country: None (occurrence: None)
  Receive Date: 20081219
  Receipt Date: 20040106
  Transmission Date: 20090506
  Serious: No
  Sender: FDA-Public Use
  Company Number: TEST00204000047

PATIENT
  Sex: Male

DRUGS (2)
  1. ANDROGEL [Suspect]
     Indication: ACCIDENTAL EXPOSURE
     Dosage: /DAILY TRANSCUTANEOUS
     Route: 062
  2. ANDROGEL [Suspect]
     Indication: DRUG USE FOR UNKNOWN INDICATION
     Dosage: /DAILY TRANSCUTANEOUS
     Route: 062

REACTIONS (2)
  - ACCIDENTAL EXPOSURE [None]
  - PRECOCIOUS PUBERTY [None]
